FAERS Safety Report 7350394-2 (Version None)
Quarter: 2011Q1

REPORT INFORMATION
  Report Type: 
  Country: None (occurrence: None)
  Receive Date: 20110314
  Receipt Date: 20110310
  Transmission Date: 20110831
  Serious: Yes (Other)
  Sender: FDA-Public Use
  Company Number: HU-BRISTOL-MYERS SQUIBB COMPANY-14474555

PATIENT
  Age: 61 Year
  Sex: Male
  Weight: 70 kg

DRUGS (9)
  1. CETUXIMAB [Suspect]
     Indication: GASTROOESOPHAGEAL CANCER
     Dosage: PERMANENTLY DISCONTINUED ON 16-SEP-2008
     Route: 042
     Dates: start: 20080722, end: 20080916
  2. BLOOD TRANSFUSION [Concomitant]
     Dosage: 1 DOSAGE FORM= 4(UNIT NOT SPECIFIED). 03OCT,25NOV-28NOV2008.
     Dates: start: 20081003, end: 20081128
  3. AMOXICILLIN + CLAVULANIC ACID [Concomitant]
     Dates: start: 20081020, end: 20081026
  4. COVEREX [Concomitant]
     Dates: start: 20070101
  5. CISPLATIN [Suspect]
     Indication: GASTROOESOPHAGEAL CANCER
     Dosage: DOSE TAKEN ON DAY 1 OF THE CYCLE.
     Route: 042
     Dates: start: 20080722, end: 20081218
  6. XELODA [Suspect]
     Indication: GASTROOESOPHAGEAL CANCER
     Dosage: DOSE TAKEN ON DAY 1-15;MOST RECENT INF:19DEC2008 TEMP DISCONTINUED ON  01JAN2009 163D
     Route: 048
     Dates: start: 20080722, end: 20090101
  7. NADROPARINE [Concomitant]
     Dates: start: 20081020
  8. DOXYCYCLINE [Concomitant]
     Dates: start: 20080805, end: 20080810
  9. ONDANSETRON [Concomitant]
     Indication: PROPHYLAXIS
     Dates: start: 20081006

REACTIONS (2)
  - DEEP VEIN THROMBOSIS [None]
  - PULMONARY EMBOLISM [None]
